FAERS Safety Report 6628919-1 (Version None)
Quarter: 2010Q1

REPORT INFORMATION
  Report Type: 
  Country: None (occurrence: None)
  Receive Date: 20100311
  Receipt Date: 20100226
  Transmission Date: 20100710
  Serious: Yes (Other)
  Sender: FDA-Public Use
  Company Number: JP-PFIZER INC-2010026668

PATIENT

DRUGS (3)
  1. CHAMPIX [Suspect]
     Dosage: 0.5MG DAILY
  2. CHAMPIX [Suspect]
     Dosage: 2 MG PER DAY
  3. CHAMPIX [Suspect]
     Dosage: 1 MG PER DAY

REACTIONS (3)
  - BLOOD CREATININE INCREASED [None]
  - BLOOD GLUCOSE INCREASED [None]
  - MALAISE [None]
